APPROVED DRUG PRODUCT: DEXTROSE 60% IN PLASTIC CONTAINER
Active Ingredient: DEXTROSE
Strength: 60GM/100ML
Dosage Form/Route: INJECTABLE;INJECTION
Application: N020047 | Product #002
Applicant: BAXTER HEALTHCARE CORP
Approved: Jul 2, 1991 | RLD: No | RS: No | Type: DISCN